FAERS Safety Report 7124936-6 (Version None)
Quarter: 2010Q4

REPORT INFORMATION
  Report Type: 
  Country: None (occurrence: None)
  Receive Date: 20101112
  Receipt Date: 20101105
  Transmission Date: 20110411
  Serious: Yes (Death)
  Sender: FDA-Public Use
  Company Number: URSO-2010-072 FUP2

PATIENT
  Age: 61 Year
  Sex: Male

DRUGS (2)
  1. URSODIOL [Suspect]
     Indication: HEPATITIS C
     Dosage: 300MG ORAL, 600MG ORAL
     Route: 048
     Dates: end: 20090325
  2. URSODIOL [Suspect]
     Indication: HEPATITIS C
     Dosage: 300MG ORAL, 600MG ORAL
     Route: 048
     Dates: start: 20090326, end: 20091008

REACTIONS (2)
  - CONDITION AGGRAVATED [None]
  - INTERSTITIAL LUNG DISEASE [None]
